FAERS Safety Report 7042869-0 (Version None)
Quarter: 2010Q4

REPORT INFORMATION
  Report Type: 
  Country: None (occurrence: None)
  Receive Date: 20101013
  Receipt Date: 20100314
  Transmission Date: 20110411
  Serious: No
  Sender: FDA-Public Use
  Company Number: US-ASTRAZENECA-2010SE11116

PATIENT
  Age: 91 Year
  Sex: Female
  Weight: 70.3 kg

DRUGS (1)
  1. SYMBICORT [Suspect]
     Indication: CHRONIC OBSTRUCTIVE PULMONARY DISEASE
     Dosage: UNKNOWN DOSE
     Route: 055
     Dates: start: 20091101

REACTIONS (4)
  - HEADACHE [None]
  - OPHTHALMOPLEGIC MIGRAINE [None]
  - VISION BLURRED [None]
  - VISUAL IMPAIRMENT [None]
